FAERS Safety Report 19880792 (Version 1)
Quarter: 2021Q3

REPORT INFORMATION
  Report Type: Spontaneous
  Country: CN (occurrence: CN)
  Receive Date: 20210925
  Receipt Date: 20210925
  Transmission Date: 20211014
  Serious: Yes (Other)
  Sender: FDA-Public Use
  Company Number: CN-ABBVIE-21K-035-4090791-00

PATIENT
  Age: 26 Year
  Sex: Male
  Weight: 60 kg

DRUGS (3)
  1. OU LAN NING [Concomitant]
     Active Substance: OLANZAPINE
     Indication: BIPOLAR DISORDER
     Dates: start: 20180502, end: 20180502
  2. DEPAKINE [Suspect]
     Active Substance: VALPROATE SODIUM
     Indication: AFFECTIVE DISORDER
     Route: 041
     Dates: start: 20180502, end: 20180502
  3. OU LAN NING [Concomitant]
     Active Substance: OLANZAPINE
     Indication: MANIA

REACTIONS (1)
  - Dystonia [Recovered/Resolved]

NARRATIVE: CASE EVENT DATE: 20180502
